FAERS Safety Report 10362644 (Version 1)
Quarter: 2014Q3

REPORT INFORMATION
  Report Type: Spontaneous
  Country: DE (occurrence: None)
  Receive Date: 20140731
  Receipt Date: 20140731
  Transmission Date: 20150326
  Serious: Yes (Hospitalization)
  Sender: FDA-Public Use
  Company Number: 229005LEO

PATIENT
  Sex: Female
  Weight: 91 kg

DRUGS (8)
  1. ETANERCEPT [Suspect]
     Active Substance: ETANERCEPT
     Dates: start: 201312
  2. LAMOTRIGINE. [Concomitant]
     Active Substance: LAMOTRIGINE
  3. DAIVOBET [Suspect]
     Active Substance: BETAMETHASONE DIPROPIONATE\CALCIPOTRIENE
     Route: 061
     Dates: start: 2005
  4. L-THYROXIN (LEVOTHYROXINE SODIUM) [Concomitant]
  5. ARIPIPRAZOLE [Concomitant]
     Active Substance: ARIPIPRAZOLE
  6. ASS (ACETYLSALICYLIC ACID) [Concomitant]
  7. VENLAFAXINE [Concomitant]
     Active Substance: VENLAFAXINE HYDROCHLORIDE
  8. LEFLUNOMIDE. [Suspect]
     Active Substance: LEFLUNOMIDE
     Dates: start: 2010, end: 201404

REACTIONS (2)
  - Suicide attempt [None]
  - Toxicity to various agents [None]

NARRATIVE: CASE EVENT DATE: 20140327
